FAERS Safety Report 9760267 (Version 2)
Quarter: 2013Q4

REPORT INFORMATION
  Report Type: Spontaneous
  Country: US (occurrence: US)
  Receive Date: 20131216
  Receipt Date: 20131216
  Transmission Date: 20140711
  Serious: No
  Sender: FDA-Public Use
  Company Number: US-GILEAD-2010-0028832

PATIENT
  Age: 68 Year
  Sex: Female
  Weight: 68.95 kg

DRUGS (16)
  1. LETAIRIS [Suspect]
     Indication: PULMONARY ARTERIAL HYPERTENSION
     Route: 048
     Dates: start: 20100128, end: 20100325
  2. CELEBREX [Concomitant]
  3. SYNTHROID [Concomitant]
  4. LIPITOR [Concomitant]
  5. EXFORGE [Concomitant]
  6. BUSPIRONE [Concomitant]
  7. ACTONEL [Concomitant]
  8. TOPROL XL [Concomitant]
  9. CATAPRES TTS [Concomitant]
  10. ASPIRIN [Concomitant]
  11. METAMUCIL [Concomitant]
  12. VITAMIN B-12 [Concomitant]
  13. OSTEO-TECH [Concomitant]
  14. VITAMIN D3 [Concomitant]
  15. VITAMIN C [Concomitant]
  16. VITAMIN E [Concomitant]

REACTIONS (2)
  - Hypersensitivity [Recovered/Resolved]
  - Rash [Recovered/Resolved]
